FAERS Safety Report 15089184 (Version 1)
Quarter: 2018Q2

REPORT INFORMATION
  Report Type: Spontaneous
  Country: US (occurrence: US)
  Receive Date: 20180629
  Receipt Date: 20180629
  Transmission Date: 20180711
  Serious: No
  Sender: FDA-Public Use
  Company Number: US-SA-2018SA168957

PATIENT
  Age: 54 Year
  Sex: Male

DRUGS (1)
  1. PRALUENT [Suspect]
     Active Substance: ALIROCUMAB
     Dosage: 75 MG, QOW
     Route: 058
     Dates: start: 20180401, end: 20180619

REACTIONS (4)
  - Pain in extremity [Unknown]
  - Diarrhoea [Unknown]
  - Condition aggravated [Unknown]
  - Hallucination [Unknown]

NARRATIVE: CASE EVENT DATE: 20180401
